FAERS Safety Report 7497575-5 (Version None)
Quarter: 2011Q2

REPORT INFORMATION
  Report Type: 
  Country: None (occurrence: None)
  Receive Date: 20110523
  Receipt Date: 20110516
  Transmission Date: 20111010
  Serious: Yes (Other)
  Sender: FDA-Public Use
  Company Number: IT-PFIZER INC-2011105612

PATIENT
  Age: 46 Year
  Sex: Female

DRUGS (8)
  1. GEMCITABINE [Suspect]
     Indication: UTERINE LEIOMYOSARCOMA
     Dosage: 800 MG/M2, D1-8, Q21
  2. IFOSFAMIDE [Suspect]
     Indication: UTERINE LEIOMYOSARCOMA
     Dosage: 2.5 MG/M2, D1, Q21
  3. EPIRUBICIN HYDROCHLORIDE [Suspect]
     Indication: UTERINE LEIOMYOSARCOMA
     Dosage: 90 MG/M2, D1, Q21
  4. DOCETAXEL [Suspect]
     Indication: UTERINE LEIOMYOSARCOMA
     Dosage: 75 MG/M2, D1, Q21
  5. BROSTALLICIN [Suspect]
     Indication: UTERINE LEIOMYOSARCOMA
     Dosage: 7 MG/M2, D1, Q21
  6. ETOPOSIDE [Suspect]
     Indication: UTERINE LEIOMYOSARCOMA
     Dosage: UNK
  7. CISPLATIN [Suspect]
     Indication: UTERINE LEIOMYOSARCOMA
     Dosage: 75 MG/M2, D1, Q21
  8. DOXORUBICIN HCL [Suspect]
     Indication: UTERINE LEIOMYOSARCOMA
     Dosage: 35 MG/M2, D1, Q21

REACTIONS (4)
  - ANAEMIA [None]
  - THROMBOCYTOPENIA [None]
  - FEBRILE NEUTROPENIA [None]
  - HEPATIC FUNCTION ABNORMAL [None]
